FAERS Safety Report 17859291 (Version 1)
Quarter: 2020Q2

REPORT INFORMATION
  Report Type: Spontaneous
  Country: US (occurrence: US)
  Receive Date: 20200604
  Receipt Date: 20200604
  Transmission Date: 20200714
  Serious: No
  Sender: FDA-Public Use
  Company Number: US-AUROBINDO-AUR-APL-2020-015877

PATIENT
  Age: 79 Year
  Sex: Female
  Weight: 83.44 kg

DRUGS (2)
  1. ACETAMINOPHEN AND CODEINE PHOSPHATE TABLETS USP 300 MG/30 MG [Suspect]
     Active Substance: ACETAMINOPHEN\CODEINE PHOSPHATE
     Indication: ARTHRALGIA
  2. ACETAMINOPHEN AND CODEINE PHOSPHATE TABLETS USP 300 MG/30 MG [Suspect]
     Active Substance: ACETAMINOPHEN\CODEINE PHOSPHATE
     Indication: RHEUMATOID ARTHRITIS
     Dosage: 1 DOSAGE FORM, EVERY 4 HOURS
     Route: 065
     Dates: start: 20200317, end: 20200317

REACTIONS (3)
  - Product substitution issue [Unknown]
  - Abdominal pain upper [Recovered/Resolved]
  - Abdominal distension [Recovered/Resolved]

NARRATIVE: CASE EVENT DATE: 20200319
